FAERS Safety Report 9669843 (Version 1)
Quarter: 2013Q4

REPORT INFORMATION
  Report Type: Spontaneous
  Country: US (occurrence: US)
  Receive Date: 20131105
  Receipt Date: 20131105
  Transmission Date: 20140711
  Serious: Yes (Hospitalization)
  Sender: FDA-Public Use
  Company Number: US-INCYTE CORPORATION-2013IN002577

PATIENT
  Age: 79 Year
  Sex: Female

DRUGS (7)
  1. JAKAFI [Suspect]
     Dosage: 5 MG, QD
     Route: 048
     Dates: start: 20131025, end: 20131026
  2. JAKAFI [Suspect]
     Dosage: NOT SPECIFIED
     Dates: start: 20131029
  3. CARVEDILOL [Concomitant]
  4. POTASSIUM [Concomitant]
  5. SIMVASTATIN [Concomitant]
  6. SYNTHROID [Concomitant]
  7. FOLIC ACID [Concomitant]

REACTIONS (2)
  - Dehydration [Recovering/Resolving]
  - Blood count abnormal [Recovering/Resolving]
